FAERS Safety Report 22198546 (Version 2)
Quarter: 2023Q2

REPORT INFORMATION
  Report Type: Spontaneous
  Country: SE (occurrence: SE)
  Receive Date: 20230411
  Receipt Date: 20230502
  Transmission Date: 20230722
  Serious: Yes (Other)
  Sender: FDA-Public Use
  Company Number: SE-ROCHE-3323801

PATIENT
  Sex: Female

DRUGS (17)
  1. DEXAMETHASONE [Suspect]
     Active Substance: DEXAMETHASONE
     Indication: Diffuse large B-cell lymphoma
     Route: 065
     Dates: start: 20220426, end: 20220426
  2. OXALIPLATIN [Suspect]
     Active Substance: OXALIPLATIN
     Indication: Diffuse large B-cell lymphoma
     Route: 065
     Dates: start: 20220615, end: 20220919
  3. CYCLOPHOSPHAMIDE [Suspect]
     Active Substance: CYCLOPHOSPHAMIDE
     Indication: Diffuse large B-cell lymphoma
     Route: 065
     Dates: start: 20211001, end: 20220308
  4. METHOTREXATE [Suspect]
     Active Substance: METHOTREXATE
     Indication: Diffuse large B-cell lymphoma
     Route: 065
     Dates: start: 20211001, end: 20220308
  5. POLATUZUMAB VEDOTIN [Suspect]
     Active Substance: POLATUZUMAB VEDOTIN
     Indication: Diffuse large B-cell lymphoma
     Route: 065
     Dates: start: 20220615, end: 20220919
  6. GEMCITABINE [Suspect]
     Active Substance: GEMCITABINE
     Indication: Diffuse large B-cell lymphoma
     Route: 065
     Dates: start: 20220615, end: 20220919
  7. GEMCITABINE [Suspect]
     Active Substance: GEMCITABINE
     Route: 065
     Dates: start: 20220426, end: 20220426
  8. OBINUTUZUMAB [Suspect]
     Active Substance: OBINUTUZUMAB
     Indication: Diffuse large B-cell lymphoma
     Route: 042
     Dates: start: 20220426, end: 20220426
  9. CISPLATIN [Suspect]
     Active Substance: CISPLATIN
     Indication: Diffuse large B-cell lymphoma
     Route: 065
     Dates: start: 20220426, end: 20220426
  10. EPIRUBICIN [Suspect]
     Active Substance: EPIRUBICIN
     Indication: Diffuse large B-cell lymphoma
     Route: 065
     Dates: start: 20211001, end: 20220308
  11. RITUXIMAB [Suspect]
     Active Substance: RITUXIMAB
     Indication: Diffuse large B-cell lymphoma
     Route: 065
     Dates: start: 20220426, end: 20220426
  12. RITUXIMAB [Suspect]
     Active Substance: RITUXIMAB
     Indication: Diffuse large B-cell lymphoma
     Route: 065
     Dates: start: 20211001, end: 20220308
  13. PREDNISONE [Suspect]
     Active Substance: PREDNISONE
     Indication: Diffuse large B-cell lymphoma
     Route: 065
     Dates: start: 20211001, end: 20220308
  14. VINCRISTINE SULFATE [Suspect]
     Active Substance: VINCRISTINE SULFATE
     Indication: Diffuse large B-cell lymphoma
     Route: 065
     Dates: start: 20211001, end: 20220308
  15. ETOPOSIDE [Suspect]
     Active Substance: ETOPOSIDE
     Indication: Diffuse large B-cell lymphoma
     Route: 065
     Dates: start: 20211001, end: 20220308
  16. CYTARABINE [Suspect]
     Active Substance: CYTARABINE
     Indication: Diffuse large B-cell lymphoma
     Route: 065
     Dates: start: 20211001, end: 20220308
  17. DOXORUBICIN [Suspect]
     Active Substance: DOXORUBICIN
     Indication: Diffuse large B-cell lymphoma
     Route: 065
     Dates: start: 20211001, end: 20220308

REACTIONS (5)
  - Acute kidney injury [Recovered/Resolved]
  - Disease progression [Unknown]
  - Toxicity to various agents [Unknown]
  - Drug ineffective [Unknown]
  - Off label use [Unknown]
